FAERS Safety Report 9119393 (Version 2)
Quarter: 2013Q1

REPORT INFORMATION
  Report Type: Spontaneous
  Country: JP (occurrence: JP)
  Receive Date: 20130226
  Receipt Date: 20130325
  Transmission Date: 20140127
  Serious: Yes (Hospitalization, Other)
  Sender: FDA-Public Use
  Company Number: JP-ELI_LILLY_AND_COMPANY-JP201302000570

PATIENT
  Age: 63 Year
  Sex: Male
  Weight: 52 kg

DRUGS (7)
  1. ZYPREXA INTRA-MUSCULAR INJECTION [Suspect]
     Indication: BIPOLAR DISORDER
     Dosage: 10 MG, UNK
     Route: 030
     Dates: start: 20130202, end: 20130202
  2. ZYPREXA [Suspect]
     Indication: BIPOLAR DISORDER
     Dosage: 20 MG, QD
     Route: 048
     Dates: start: 201208, end: 20130131
  3. ZYPREXA [Suspect]
     Dosage: 20 MG, QD
     Route: 048
     Dates: start: 201302
  4. LITIOMAL [Concomitant]
     Indication: BIPOLAR DISORDER
     Dosage: UNK
     Route: 048
     Dates: start: 201208, end: 20130131
  5. LEVOTOMIN [Concomitant]
     Dosage: UNK
     Route: 048
     Dates: start: 20130201, end: 20130201
  6. NELUROLEN [Concomitant]
     Dosage: UNK
     Route: 048
     Dates: start: 20130201, end: 20130201
  7. ROHYPNOL [Concomitant]
     Dosage: UNK
     Route: 048
     Dates: start: 20130201, end: 20130201

REACTIONS (3)
  - Mania [Unknown]
  - Blood pressure decreased [Recovered/Resolved]
  - Off label use [Recovered/Resolved]
